FAERS Safety Report 14613573 (Version 1)
Quarter: 2018Q1

REPORT INFORMATION
  Report Type: Spontaneous
  Country: US (occurrence: US)
  Receive Date: 20180308
  Receipt Date: 20180308
  Transmission Date: 20180509
  Serious: No
  Sender: FDA-Public Use
  Company Number: None

PATIENT
  Age: 51 Year
  Sex: Male
  Weight: 49.94 kg

DRUGS (1)
  1. ETHAMBUTOL [Suspect]
     Active Substance: ETHAMBUTOL HYDROCHLORIDE
     Indication: MYCOBACTERIUM AVIUM COMPLEX INFECTION
     Route: 048
     Dates: start: 20171215, end: 20171226

REACTIONS (2)
  - Hypotension [None]
  - Thrombocytopenia [None]

NARRATIVE: CASE EVENT DATE: 20171226
